FAERS Safety Report 19970519 (Version 1)
Quarter: 2021Q4

REPORT INFORMATION
  Report Type: Spontaneous
  Country: US (occurrence: US)
  Receive Date: 20211019
  Receipt Date: 20211019
  Transmission Date: 20220303
  Serious: No
  Sender: FDA-Public Use
  Company Number: US-TELIGENT, INC-20210200009

PATIENT
  Age: 36 Year
  Sex: Female
  Weight: 72.57 kg

DRUGS (2)
  1. NORFLEX [Suspect]
     Active Substance: ORPHENADRINE CITRATE
  2. TRAMADOL [Suspect]
     Active Substance: TRAMADOL

REACTIONS (5)
  - Pain in extremity [Unknown]
  - Musculoskeletal stiffness [Unknown]
  - Injection site pain [Unknown]
  - Musculoskeletal stiffness [Unknown]
  - Muscular weakness [Unknown]

NARRATIVE: CASE EVENT DATE: 20210101
